FAERS Safety Report 9205781 (Version 2)
Quarter: 2013Q2

REPORT INFORMATION
  Report Type: Spontaneous
  Country: CA (occurrence: CA)
  Receive Date: 20130403
  Receipt Date: 20130426
  Transmission Date: 20140414
  Serious: Yes (Hospitalization, Other)
  Sender: FDA-Public Use
  Company Number: CA-AMGEN-CANSP2013022580

PATIENT
  Age: 73 Year
  Sex: Male

DRUGS (6)
  1. PROLIA [Suspect]
     Indication: OSTEOPOROSIS
     Dosage: 60 MG, UNK
     Route: 042
     Dates: start: 20120216, end: 20130214
  2. IRBESARTAN [Concomitant]
     Indication: HYPERTENSION
     Dosage: 75 MG, QD
     Route: 048
  3. DUTASTERIDE [Concomitant]
     Indication: BENIGN PROSTATIC HYPERPLASIA
     Dosage: 0.5 MG, QD
  4. TAMSULOSIN [Concomitant]
     Indication: BENIGN PROSTATIC HYPERPLASIA
     Dosage: 0.4 MG, QD
     Route: 048
  5. SEPTRA [Concomitant]
  6. NITAZOXANIDE [Concomitant]
     Indication: BLASTOCYSTIS INFECTION
     Dosage: UNK
     Dates: start: 201210

REACTIONS (13)
  - Endocarditis bacterial [Recovering/Resolving]
  - Osteomyelitis [Recovering/Resolving]
  - Post procedural infection [Unknown]
  - Amoebiasis [Unknown]
  - Tooth disorder [Unknown]
  - Malaise [Unknown]
  - Abdominal pain [Unknown]
  - Muscle spasms [Unknown]
  - Weight decreased [Unknown]
  - Chills [Unknown]
  - Nausea [Unknown]
  - Vomiting [Unknown]
  - Blastocystis infection [Not Recovered/Not Resolved]
